FAERS Safety Report 9790338 (Version 1)
Quarter: 2013Q4

REPORT INFORMATION
  Report Type: Report from Study
  Country: CA (occurrence: CA)
  Receive Date: 20131231
  Receipt Date: 20131231
  Transmission Date: 20140711
  Serious: Yes (Other)
  Sender: FDA-Public Use
  Company Number: CA-JNJFOC-20131215700

PATIENT
  Age: 42 Year
  Sex: Male
  Weight: 92.4 kg

DRUGS (9)
  1. REMICADE [Suspect]
     Indication: CROHN^S DISEASE
     Route: 042
     Dates: start: 20130905
  2. REMICADE [Suspect]
     Indication: CROHN^S DISEASE
     Route: 042
     Dates: start: 20050527
  3. REMICADE [Suspect]
     Indication: CROHN^S DISEASE
     Dosage: 55TH INFUSION
     Route: 042
     Dates: start: 20131223
  4. TYLENOL 3 [Concomitant]
     Indication: PAIN
     Route: 065
  5. MULTIVITES [Concomitant]
     Route: 065
  6. VIT D [Concomitant]
     Route: 065
  7. CALCIUM [Concomitant]
     Route: 065
  8. VIT C [Concomitant]
     Route: 065
  9. METAMUCIL [Concomitant]
     Route: 065

REACTIONS (3)
  - Chest pain [Not Recovered/Not Resolved]
  - Drug effect decreased [Recovered/Resolved]
  - Jaundice [Unknown]
